FAERS Safety Report 5719842-5 (Version None)
Quarter: 2008Q2

REPORT INFORMATION
  Report Type: 
  Country: None (occurrence: None)
  Receive Date: 20080428
  Receipt Date: 20080422
  Transmission Date: 20081010
  Serious: Yes (Disabling, Other)
  Sender: FDA-Public Use
  Company Number: US-MERCK-0804USA04786

PATIENT
  Age: 59 Year
  Sex: Male
  Weight: 76 kg

DRUGS (5)
  1. SINGULAIR [Suspect]
     Indication: ASTHMA
     Route: 048
     Dates: start: 20040610, end: 20080402
  2. PULMICORT [Concomitant]
     Route: 065
  3. SEREVENT [Concomitant]
     Route: 065
  4. PROAIR HFA [Concomitant]
     Route: 065
  5. XOLAIR [Concomitant]
     Route: 065

REACTIONS (1)
  - MAJOR DEPRESSION [None]
